FAERS Safety Report 13180606 (Version 3)
Quarter: 2017Q3

REPORT INFORMATION
  Report Type: Report from Study
  Country: CA (occurrence: CA)
  Receive Date: 20170202
  Receipt Date: 20170921
  Transmission Date: 20171127
  Serious: Yes (Other)
  Sender: FDA-Public Use
  Company Number: CA-OTSUKA-2016_014047

PATIENT
  Age: 65 Year
  Sex: Female
  Weight: 45.35 kg

DRUGS (19)
  1. HYDROMORPH [Concomitant]
     Active Substance: HYDROMORPHONE
     Indication: PAIN
     Dosage: 6 MG, QD (QPM)
     Route: 065
  2. HYDROCHLOROTHIAZIDE. [Concomitant]
     Active Substance: HYDROCHLOROTHIAZIDE
     Indication: RENAL DISORDER
     Dosage: 12.5 MG, QD (QAM)
     Route: 065
  3. CALCIUM [Concomitant]
     Active Substance: CALCIUM
     Indication: PRODUCT USED FOR UNKNOWN INDICATION
     Dosage: UNK
     Route: 065
  4. TOLVAPTAN [Suspect]
     Active Substance: TOLVAPTAN
     Indication: CONGENITAL CYSTIC KIDNEY DISEASE
     Dosage: UNK, QD (IN MORNING)
     Route: 048
     Dates: end: 20160613
  5. HYDROMORPH [Concomitant]
     Active Substance: HYDROMORPHONE
     Dosage: 1 MG, UNK (PRN)
     Route: 065
  6. COVERSYL [Concomitant]
     Active Substance: PERINDOPRIL
     Indication: PROPHYLAXIS
  7. DOMPERIDONE [Concomitant]
     Active Substance: DOMPERIDONE
     Indication: ABDOMINAL DISCOMFORT
     Dosage: UNK, QID
     Route: 065
  8. TOLVAPTAN [Suspect]
     Active Substance: TOLVAPTAN
     Dosage: UNK, QD (IN EVENING)
     Route: 048
     Dates: end: 20160613
  9. TAPAZOLE [Concomitant]
     Active Substance: METHIMAZOLE
     Indication: THYROID DISORDER
     Dosage: UNK, TID
     Route: 065
  10. METAMUCIL [Concomitant]
     Active Substance: PLANTAGO SEED
     Dosage: UNK, QD (QPM)
     Route: 065
  11. TOLVAPTAN [Suspect]
     Active Substance: TOLVAPTAN
     Dosage: 45 MG, QD (IN THE MORNING)
     Route: 048
     Dates: start: 20160618
  12. TOLVAPTAN [Suspect]
     Active Substance: TOLVAPTAN
     Dosage: 15 MG, QD (IN THE EVENING)
     Route: 048
     Dates: start: 20160618
  13. HYDROMORPH [Concomitant]
     Active Substance: HYDROMORPHONE
     Indication: CYST RUPTURE
     Dosage: 6 MG, QD (QAM)
     Route: 065
  14. DILANTIN [Concomitant]
     Active Substance: PHENYTOIN
     Indication: SEIZURE
     Dosage: 250 MG, BID
     Route: 065
  15. HYDROCHLOROTHIAZIDE. [Concomitant]
     Active Substance: HYDROCHLOROTHIAZIDE
     Indication: PROPHYLAXIS
  16. COVERSYL [Concomitant]
     Active Substance: PERINDOPRIL
     Indication: RENAL DISORDER
     Dosage: 8 MG, QD (QAM)
     Route: 065
  17. METAMUCIL [Concomitant]
     Active Substance: PLANTAGO SEED
     Indication: POLYP
     Dosage: UNK, QD (QAM)
     Route: 065
  18. VITAMIN D [Concomitant]
     Active Substance: CHOLECALCIFEROL
     Indication: PRODUCT USED FOR UNKNOWN INDICATION
     Dosage: UNK, QD (QAM)
     Route: 065
  19. B100 [Concomitant]
     Active Substance: MINERALS\VITAMINS
     Indication: PRODUCT USED FOR UNKNOWN INDICATION
     Dosage: UNK
     Route: 065

REACTIONS (7)
  - Hyperthyroidism [Not Recovered/Not Resolved]
  - Blood pressure increased [Recovered/Resolved]
  - Stress [Not Recovered/Not Resolved]
  - Nodule [Unknown]
  - Drug dose omission [Unknown]
  - Weight decreased [Not Recovered/Not Resolved]
  - Diplopia [Not Recovered/Not Resolved]

NARRATIVE: CASE EVENT DATE: 20161102
